FAERS Safety Report 6651404-8 (Version None)
Quarter: 2010Q1

REPORT INFORMATION
  Report Type: 
  Country: None (occurrence: None)
  Receive Date: 20100325
  Receipt Date: 20100313
  Transmission Date: 20100710
  Serious: Yes (Other)
  Sender: FDA-Public Use
  Company Number: US-JNJFOC-20090403766

PATIENT
  Sex: Female

DRUGS (3)
  1. LEVAQUIN [Suspect]
     Indication: PNEUMONIA
     Route: 048
  2. LISINOPRIL [Concomitant]
     Route: 065
  3. ZETIA [Concomitant]
     Route: 065

REACTIONS (3)
  - LIGAMENT INJURY [None]
  - OEDEMA PERIPHERAL [None]
  - PAIN IN EXTREMITY [None]
